FAERS Safety Report 22298318 (Version 2)
Quarter: 2023Q2

REPORT INFORMATION
  Report Type: Report from Study
  Country: GB (occurrence: GB)
  Receive Date: 20230509
  Receipt Date: 20230525
  Transmission Date: 20230721
  Serious: Yes (Other)
  Sender: FDA-Public Use
  Company Number: GB-SAMSUNG BIOEPIS-SB-2022-09061

PATIENT

DRUGS (4)
  1. PREDNISOLONE [Suspect]
     Active Substance: PREDNISOLONE
     Indication: Product used for unknown indication
     Dosage: UNK
     Route: 065
  2. IMRALDI [Suspect]
     Active Substance: ADALIMUMAB
     Indication: Crohn^s disease
     Dosage: 160 MG, WEEK ZERO
     Route: 058
     Dates: start: 20220329
  3. IMRALDI [Suspect]
     Active Substance: ADALIMUMAB
     Dosage: 40 MG, EVERY TWO WEEKS
     Route: 058
  4. IMRALDI [Suspect]
     Active Substance: ADALIMUMAB
     Dosage: 80 MG, WEEK TWO
     Route: 058

REACTIONS (19)
  - Crohn^s disease [Not Recovered/Not Resolved]
  - Influenza [Unknown]
  - Pain [Unknown]
  - Urinary tract infection [Recovering/Resolving]
  - Peripheral swelling [Not Recovered/Not Resolved]
  - Musculoskeletal stiffness [Not Recovered/Not Resolved]
  - Injection site pain [Unknown]
  - Nasopharyngitis [Unknown]
  - Body temperature increased [Unknown]
  - Pyrexia [Unknown]
  - Influenza like illness [Unknown]
  - Back pain [Unknown]
  - Increased tendency to bruise [Unknown]
  - Pain in extremity [Not Recovered/Not Resolved]
  - Trigger finger [Unknown]
  - Contusion [Unknown]
  - Headache [Unknown]
  - Malaise [Unknown]
  - Arthralgia [Unknown]

NARRATIVE: CASE EVENT DATE: 20220329
